FAERS Safety Report 7102958-9 (Version None)
Quarter: 2010Q4

REPORT INFORMATION
  Report Type: 
  Country: None (occurrence: None)
  Receive Date: 20101108
  Receipt Date: 20101025
  Transmission Date: 20110411
  Serious: Yes (Hospitalization)
  Sender: FDA-Public Use
  Company Number: IPC201010-000282

PATIENT
  Age: 85 Year
  Sex: Female

DRUGS (5)
  1. HYDROCHLOROTHIAZIDE [Suspect]
  2. INSULIN [Suspect]
  3. DIGOXIN [Suspect]
  4. TAMOXIFEN CITRATE [Suspect]
  5. AMILORIDE HYDROCHLORIDE [Suspect]

REACTIONS (3)
  - DELIRIUM [None]
  - HYPERCALCAEMIA [None]
  - RENAL IMPAIRMENT [None]
